FAERS Safety Report 4971402-X (Version None)
Quarter: 2006Q2

REPORT INFORMATION
  Report Type: 
  Country: None (occurrence: None)
  Receive Date: 20060406
  Receipt Date: 20060323
  Transmission Date: 20061013
  Serious: Yes (Life-Threatening)
  Sender: FDA-Public Use
  Company Number: CN-2006-006733

PATIENT
  Age: 58 Year
  Sex: Male
  Weight: 75 kg

DRUGS (1)
  1. ULTRAVIST 300 [Suspect]
     Indication: COMPUTERISED TOMOGRAM
     Dosage: 75 ML 1 DOSE, 2.5 ML/SEC) INTRAVENOUS
     Route: 042
     Dates: start: 20060322, end: 20060322

REACTIONS (1)
  - ANAPHYLACTIC SHOCK [None]
